FAERS Safety Report 5211609-X (Version None)
Quarter: 2007Q1

REPORT INFORMATION
  Report Type: 
  Country: None (occurrence: None)
  Receive Date: 20070117
  Receipt Date: 20070117
  Transmission Date: 20070707
  Serious: Yes (Hospitalization)
  Sender: FDA-Public Use
  Company Number: None

PATIENT
  Age: 60 Year
  Sex: Male

DRUGS (10)
  1. HEPARIN [Suspect]
     Indication: THROMBOSIS PROPHYLAXIS
     Dates: start: 20061109, end: 20061115
  2. ACETAMINOPHEN [Concomitant]
  3. BACITRACIN [Concomitant]
  4. CEFEPIME [Concomitant]
  5. DEXTROSE [Concomitant]
  6. EPOETIN ALFA [Concomitant]
  7. HEPARIN [Concomitant]
  8. HYDROCORTISONE SODIUM [Concomitant]
  9. IPRATROPIUM BROMIDE [Concomitant]
  10. MAGNESIUM HYDROXIDE TAB [Concomitant]

REACTIONS (3)
  - ANTIBODY TEST POSITIVE [None]
  - HEPARIN-INDUCED THROMBOCYTOPENIA TEST [None]
  - PLATELET COUNT DECREASED [None]
